FAERS Safety Report 4974789-7 (Version None)
Quarter: 2006Q2

REPORT INFORMATION
  Report Type: 
  Country: None (occurrence: None)
  Receive Date: 20060410
  Receipt Date: 20060330
  Transmission Date: 20061013
  Serious: Yes (Hospitalization)
  Sender: FDA-Public Use
  Company Number: USA-2006-0023823

PATIENT
  Age: 49 Year
  Sex: Female

DRUGS (3)
  1. CEFDITOREN PIVOXIL (SIMILAR TO NDA 21-222) (CEFDITOREN PIVOXIL)OTHER [Suspect]
     Indication: INFECTION PROPHYLAXIS
     Dosage: 300 MG, DAILY, ORAL
     Route: 048
     Dates: start: 20060228, end: 20060304
  2. AMLODIPINE BESYLATE [Concomitant]
  3. JUVELA NICOTINATE [Concomitant]

REACTIONS (7)
  - ANAEMIA HAEMOLYTIC AUTOIMMUNE [None]
  - BLOOD BILIRUBIN INCREASED [None]
  - BLOOD LACTATE DEHYDROGENASE INCREASED [None]
  - HAEMOGLOBINURIA [None]
  - JAUNDICE [None]
  - MALAISE [None]
  - PYREXIA [None]
